FAERS Safety Report 16033087 (Version 5)
Quarter: 2020Q4

REPORT INFORMATION
  Report Type: Spontaneous
  Country: US (occurrence: US)
  Receive Date: 20190305
  Receipt Date: 20201127
  Transmission Date: 20210113
  Serious: Yes (Hospitalization)
  Sender: FDA-Public Use
  Company Number: US-IMPAX LABORATORIES, LLC-2018-IPXL-02324

PATIENT
  Age: 64 Year
  Sex: Female

DRUGS (3)
  1. RYTARY [Suspect]
     Active Substance: CARBIDOPA\LEVODOPA
     Indication: PARKINSON^S DISEASE
     Dosage: 2 CAPSULES, UP TO 5 TIMES DAILY
     Route: 048
     Dates: start: 20180627, end: 20180628
  2. RYTARY [Suspect]
     Active Substance: CARBIDOPA\LEVODOPA
     Dosage: 4 CAPSULES, 4 /DAY
     Route: 048
     Dates: start: 20201117
  3. RYTARY [Suspect]
     Active Substance: CARBIDOPA\LEVODOPA
     Dosage: 3 CAPSULES, 4 /DAY
     Route: 048
     Dates: start: 2018, end: 20201117

REACTIONS (7)
  - Prescribed overdose [Unknown]
  - Sciatica [Unknown]
  - Myalgia [Recovered/Resolved]
  - Therapeutic response shortened [Unknown]
  - Panic attack [Recovered/Resolved]
  - Arthralgia [Recovered/Resolved]
  - Intentional product use issue [Unknown]

NARRATIVE: CASE EVENT DATE: 2018
